FAERS Safety Report 9180094 (Version 1)
Quarter: 2013Q1

REPORT INFORMATION
  Report Type: Spontaneous
  Country: US (occurrence: US)
  Receive Date: 20130321
  Receipt Date: 20130321
  Transmission Date: 20140127
  Serious: Yes (Other)
  Sender: FDA-Public Use
  Company Number: US-US-EMD SERONO, INC.-7199576

PATIENT
  Age: 57 Year
  Sex: Male

DRUGS (1)
  1. EGRIFTA [Suspect]
     Indication: LIPODYSTROPHY ACQUIRED
     Route: 058
     Dates: start: 20120217

REACTIONS (3)
  - Grip strength decreased [Unknown]
  - Nerve injury [Unknown]
  - Hypoaesthesia [Not Recovered/Not Resolved]
